FAERS Safety Report 17794003 (Version 1)
Quarter: 2020Q2

REPORT INFORMATION
  Report Type: Spontaneous
  Country: US (occurrence: US)
  Receive Date: 20200516
  Receipt Date: 20200516
  Transmission Date: 20200714
  Serious: Yes (Other)
  Sender: FDA-Public Use
  Company Number: US-SUN PHARMACEUTICAL INDUSTRIES LTD-2019R1-209016

PATIENT
  Age: 4 Month
  Sex: Female

DRUGS (4)
  1. ETOPOSIDE. [Suspect]
     Active Substance: ETOPOSIDE
     Indication: CHEMOTHERAPY
     Dosage: 10 MILLIGRAM/KILOGRAM (DIVODED IN 2 DAYS)
     Route: 065
  2. MELPHALAN. [Suspect]
     Active Substance: MELPHALAN
     Indication: NEOPLASM MALIGNANT
     Dosage: UNK
     Route: 013
  3. CARBOPLATIN. [Suspect]
     Active Substance: CARBOPLATIN
     Indication: CHEMOTHERAPY
     Dosage: 18.6 MILLIGRAM/KILOGRAM
     Route: 065
  4. VINCRISTINE [Suspect]
     Active Substance: VINCRISTINE
     Indication: CHEMOTHERAPY
     Dosage: 0.05 MILLIGRAM/KILOGRAM
     Route: 065

REACTIONS (3)
  - Ischaemia [Recovered/Resolved]
  - Neoplasm progression [Unknown]
  - Vocal cord paresis [Unknown]
